FAERS Safety Report 15928136 (Version 1)
Quarter: 2019Q1

REPORT INFORMATION
  Report Type: Spontaneous
  Country: US (occurrence: US)
  Receive Date: 20190205
  Receipt Date: 20190205
  Transmission Date: 20190417
  Serious: No
  Sender: FDA-Public Use
  Company Number: US-DRREDDYS-USA/USA/19/0107430

PATIENT
  Age: 64 Year
  Sex: Female
  Weight: 68.2 kg

DRUGS (1)
  1. HABITROL [Suspect]
     Active Substance: NICOTINE
     Indication: PRODUCT USED FOR UNKNOWN INDICATION
     Dosage: HABITROL TRANDERMAL NICOTINE REPLACEMENT PATCH-NOVARTIS CONTROL HAB COMBO 56 CT NCH 56 CT
     Route: 062

REACTIONS (2)
  - Product dose omission [Unknown]
  - Product quality issue [Unknown]
